FAERS Safety Report 14648782 (Version 1)
Quarter: 2018Q1

REPORT INFORMATION
  Report Type: Spontaneous
  Country: AU (occurrence: AU)
  Receive Date: 20180316
  Receipt Date: 20180316
  Transmission Date: 20180509
  Serious: Yes (Other)
  Sender: FDA-Public Use
  Company Number: AU-PFIZER INC-2018103413

PATIENT
  Age: 73 Year
  Sex: Male

DRUGS (2)
  1. SOLONE [Suspect]
     Active Substance: PREDNISOLONE
     Dosage: 5 MG, UNK
  2. XELJANZ [Suspect]
     Active Substance: TOFACITINIB CITRATE
     Dosage: 10 MG, 2X/DAY, 5MG OM, ON

REACTIONS (9)
  - Blister rupture [Recovering/Resolving]
  - Abdominal distension [Unknown]
  - Loss of consciousness [Unknown]
  - Dizziness [Unknown]
  - Hyperhidrosis [Unknown]
  - Groin infection [Recovering/Resolving]
  - Fatigue [Unknown]
  - Acne [Unknown]
  - Overdose [Unknown]
